FAERS Safety Report 9783218 (Version 1)
Quarter: 2013Q4

REPORT INFORMATION
  Report Type: Spontaneous
  Country: ES (occurrence: ES)
  Receive Date: 20131226
  Receipt Date: 20131226
  Transmission Date: 20140711
  Serious: Yes (Hospitalization)
  Sender: FDA-Public Use
  Company Number: PHHY2013ES150430

PATIENT
  Age: 74 Year
  Sex: Female

DRUGS (3)
  1. AMOXICILLIN-CLAVULANIC ACID [Suspect]
     Indication: THROMBOPHLEBITIS
     Route: 042
  2. CEFEPIME [Suspect]
  3. VANCOMYCIN [Suspect]
     Route: 042

REACTIONS (21)
  - Drug reaction with eosinophilia and systemic symptoms [Recovering/Resolving]
  - Rash erythematous [Recovering/Resolving]
  - Rash pruritic [Recovering/Resolving]
  - Pyrexia [Recovering/Resolving]
  - Rash morbilliform [Recovering/Resolving]
  - Crepitations [Recovering/Resolving]
  - Oedema peripheral [Recovering/Resolving]
  - Leukocytosis [Recovering/Resolving]
  - Eosinophilia [Recovering/Resolving]
  - Renal failure acute [Recovering/Resolving]
  - Tubulointerstitial nephritis [Recovering/Resolving]
  - Aspartate aminotransferase increased [Recovering/Resolving]
  - Alanine aminotransferase increased [Recovering/Resolving]
  - Gamma-glutamyltransferase increased [Recovering/Resolving]
  - Dyspnoea [Unknown]
  - Wheezing [Unknown]
  - Pneumonitis [Unknown]
  - Anuria [Recovering/Resolving]
  - Fluid overload [Recovering/Resolving]
  - Proteinuria [Recovering/Resolving]
  - Antibiotic level above therapeutic [Unknown]
